FAERS Safety Report 7770378-X (Version None)
Quarter: 2011Q3

REPORT INFORMATION
  Report Type: 
  Country: None (occurrence: None)
  Receive Date: 20110922
  Receipt Date: 20101004
  Transmission Date: 20111222
  Serious: Yes (Hospitalization)
  Sender: FDA-Public Use
  Company Number: US-ASTRAZENECA-2010SE46637

PATIENT
  Age: 21455 Day
  Sex: Female
  Weight: 59 kg

DRUGS (8)
  1. SEROQUEL [Suspect]
     Indication: HALLUCINATION, AUDITORY
     Route: 048
     Dates: start: 20100401
  2. GEODON [Concomitant]
     Indication: HALLUCINATIONS, MIXED
     Route: 048
     Dates: start: 20100101
  3. VALIUM [Concomitant]
     Indication: NERVOUSNESS
     Dosage: 5 MG UP TO FOUR TIMES A DAY AS NEEDED
     Dates: start: 20100501
  4. VALIUM [Concomitant]
     Indication: ANXIETY
     Dosage: 5 MG UP TO FOUR TIMES A DAY AS NEEDED
     Dates: start: 20100501
  5. GEODON [Concomitant]
     Indication: MENTAL DISORDER
     Route: 048
     Dates: start: 20100101
  6. PAXIL [Concomitant]
     Indication: DEPRESSION
     Dosage: 20 MG TWO IN MORNING AND TWO IN EVENING
     Dates: start: 20100101
  7. SEROQUEL [Suspect]
     Route: 048
     Dates: end: 20100901
  8. TRAZODONE HYDROCHLORIDE [Concomitant]
     Indication: INSOMNIA
     Dates: start: 20100101

REACTIONS (1)
  - ACCIDENTAL OVERDOSE [None]
